FAERS Safety Report 8910303 (Version 4)
Quarter: 2016Q1

REPORT INFORMATION
  Report Type: Spontaneous
  Country: AU (occurrence: AU)
  Receive Date: 20121114
  Receipt Date: 20160106
  Transmission Date: 20160526
  Serious: Yes (Disabling)
  Sender: FDA-Public Use
  Company Number: AU-COVIDIEN/TYCO HEALTHCARE/MALLINCKRODT-T201203861

PATIENT
  Age: 66 Year
  Sex: Female

DRUGS (3)
  1. EXALGO [Suspect]
     Active Substance: HYDROMORPHONE HYDROCHLORIDE
     Dosage: 8 MG, UNK
     Route: 048
     Dates: start: 201001
  2. EXALGO [Suspect]
     Active Substance: HYDROMORPHONE HYDROCHLORIDE
     Indication: PAIN
     Dosage: 16 MG, 1 IN 1 DAY
     Route: 048
     Dates: start: 20120925
  3. EXALGO [Suspect]
     Active Substance: HYDROMORPHONE HYDROCHLORIDE
     Dosage: 16 MG, 1 IN 1 DAY
     Route: 048
     Dates: start: 201208

REACTIONS (2)
  - Medication residue present [Unknown]
  - Pain [Recovering/Resolving]

NARRATIVE: CASE EVENT DATE: 20121002
